FAERS Safety Report 8686650 (Version 2)
Quarter: 2013Q4

REPORT INFORMATION
  Report Type: Report from Study
  Country: JP (occurrence: JP)
  Receive Date: 20120727
  Receipt Date: 20131106
  Transmission Date: 20140711
  Serious: Yes (Hospitalization)
  Sender: FDA-Public Use
  Company Number: JP-MSD-1203USA00795

PATIENT
  Age: 76 Year
  Sex: Male

DRUGS (15)
  1. JANUVIA [Suspect]
     Indication: TYPE 2 DIABETES MELLITUS
     Dosage: 25 MG, QD
     Route: 048
     Dates: start: 20110125, end: 20120103
  2. ACTOS [Concomitant]
     Dates: end: 20120103
  3. AMARYL [Concomitant]
     Dates: end: 20120103
  4. SEIBULE [Concomitant]
     Dates: end: 20120103
  5. ARGAMATE JELLY [Concomitant]
  6. SODIUM BICARBONATE [Concomitant]
  7. ZYLORIC [Concomitant]
  8. MAINTATE [Concomitant]
  9. WARFARIN [Concomitant]
  10. BUFFERIN [Concomitant]
     Dosage: 81 MG, UNK
  11. CRESTOR [Concomitant]
  12. RENITEN [Concomitant]
     Route: 048
  13. PREMINENT TABLETS [Concomitant]
     Route: 048
  14. AMLODIN OD [Concomitant]
  15. LOXONIN [Concomitant]

REACTIONS (2)
  - Cardiac failure [Recovered/Resolved]
  - Renal failure [Not Recovered/Not Resolved]
